FAERS Safety Report 8521850-6 (Version None)
Quarter: 2012Q3

REPORT INFORMATION
  Report Type: 
  Country: None (occurrence: None)
  Receive Date: 20120719
  Receipt Date: 20120430
  Transmission Date: 20120928
  Serious: No
  Sender: FDA-Public Use
  Company Number: US-BRISTOL-MYERS SQUIBB COMPANY-16559932

PATIENT
  Age: 55 Year
  Sex: Female
  Weight: 82 kg

DRUGS (1)
  1. YERVOY [Suspect]
     Indication: METASTATIC MALIGNANT MELANOMA
     Dosage: 4 DOSES
     Dates: start: 20120101, end: 20120330

REACTIONS (4)
  - SCRATCH [None]
  - PRURITUS [None]
  - RASH ERYTHEMATOUS [None]
  - BURNING SENSATION [None]
